FAERS Safety Report 7668157-7 (Version None)
Quarter: 2011Q3

REPORT INFORMATION
  Report Type: 
  Country: None (occurrence: None)
  Receive Date: 20110808
  Receipt Date: 20110802
  Transmission Date: 20111222
  Serious: Yes (Other)
  Sender: FDA-Public Use
  Company Number: US-PFIZER INC-2011176802

PATIENT
  Sex: Female

DRUGS (4)
  1. FISH OIL [Concomitant]
     Dosage: UNK
  2. FLAXSEED OIL [Concomitant]
     Dosage: UNK
  3. PREMPRO [Suspect]
     Indication: MENOPAUSAL SYMPTOMS
     Dosage: 0.3/1.5 MG, 1X/DAY
     Route: 048
     Dates: start: 20110622
  4. MULTI-VITAMINS [Concomitant]
     Dosage: UNK

REACTIONS (3)
  - BLOOD PRESSURE INCREASED [None]
  - RASH [None]
  - CONTUSION [None]
